FAERS Safety Report 11558273 (Version 1)
Quarter: 2015Q3

REPORT INFORMATION
  Report Type: Spontaneous
  Country: US (occurrence: None)
  Receive Date: 20150925
  Receipt Date: 20150925
  Transmission Date: 20151125
  Serious: Yes (Disabling)
  Sender: FDA-Public Use
  Company Number: None

PATIENT
  Age: 47 Year
  Sex: Female
  Weight: 96.62 kg

DRUGS (17)
  1. ASTEPRO [Concomitant]
     Active Substance: AZELASTINE HYDROCHLORIDE
  2. CPAP THERAPY [Concomitant]
  3. GAMMA AMINOBUTYRIC ACID [Concomitant]
  4. PROBIOTIC SUPPLEMENT [Concomitant]
  5. SEROQUEL [Suspect]
     Active Substance: QUETIAPINE FUMARATE
     Indication: AFFECTIVE DISORDER
     Dosage: THREE 25MG PILLS ONCE DAILY TAKEN BY MOUTH
     Route: 048
  6. MICROGESTIN [Concomitant]
     Active Substance: ETHINYL ESTRADIOL\NORETHINDRONE ACETATE
  7. IMMUNOTHERAPY [Concomitant]
  8. PANTOPRAZOLE [Concomitant]
     Active Substance: PANTOPRAZOLE SODIUM
  9. MELATONIN [Concomitant]
     Active Substance: MELATONIN
  10. SEROQUEL [Suspect]
     Active Substance: QUETIAPINE FUMARATE
     Indication: SLEEP DISORDER
     Dosage: THREE 25MG PILLS ONCE DAILY TAKEN BY MOUTH
     Route: 048
  11. SINGULAIR [Concomitant]
     Active Substance: MONTELUKAST SODIUM
  12. CETIRIZINE [Concomitant]
     Active Substance: CETIRIZINE HYDROCHLORIDE
  13. GUAIFENESIN. [Concomitant]
     Active Substance: GUAIFENESIN
  14. SEROQUEL [Suspect]
     Active Substance: QUETIAPINE FUMARATE
     Indication: ANTIDEPRESSANT THERAPY
     Dosage: THREE 25MG PILLS ONCE DAILY TAKEN BY MOUTH
     Route: 048
  15. BAHA (BONE ANCHORED HEARING AID) [Concomitant]
  16. ADVAIR HFA [Concomitant]
     Active Substance: FLUTICASONE PROPIONATE\SALMETEROL XINAFOATE
  17. NASONEX [Concomitant]
     Active Substance: MOMETASONE FUROATE

REACTIONS (13)
  - Cognitive disorder [None]
  - Heat exhaustion [None]
  - Fatigue [None]
  - Sleep apnoea syndrome [None]
  - Photosensitivity reaction [None]
  - Body temperature abnormal [None]
  - Memory impairment [None]
  - Weight increased [None]
  - Impaired work ability [None]
  - Insomnia [None]
  - Off label use [None]
  - Dehydration [None]
  - Judgement impaired [None]
